FAERS Safety Report 6887022-6 (Version None)
Quarter: 2010Q3

REPORT INFORMATION
  Report Type: 
  Country: None (occurrence: None)
  Receive Date: 20100730
  Receipt Date: 20100721
  Transmission Date: 20110219
  Serious: Yes (Hospitalization)
  Sender: FDA-Public Use
  Company Number: JP-EISAI INC.-E3810-03967-SPO-JP

PATIENT
  Age: 65 Year
  Sex: Female

DRUGS (5)
  1. PARIET (RABEPRAZOLE) [Suspect]
     Route: 048
     Dates: start: 20090512
  2. METRONIDAZOLE [Concomitant]
     Route: 048
     Dates: start: 20100512
  3. AMOXICILLIN [Concomitant]
     Indication: GASTRODUODENITIS
     Route: 048
     Dates: start: 20100512
  4. FAMOTIDINE [Concomitant]
     Dosage: UNKNOWN
     Route: 048
  5. REBAMIPIDE [Concomitant]
     Dosage: UNKNOWN
     Route: 048

REACTIONS (2)
  - DUODENAL ULCER [None]
  - OESOPHAGEAL ULCER [None]
